FAERS Safety Report 20640267 (Version 1)
Quarter: 2022Q1

REPORT INFORMATION
  Report Type: Spontaneous
  Country: FR (occurrence: FR)
  Receive Date: 20220327
  Receipt Date: 20220327
  Transmission Date: 20220423
  Serious: Yes (Death, Other)
  Sender: FDA-Public Use
  Company Number: None

PATIENT
  Age: 92 Year
  Sex: Female
  Weight: 63.1 kg

DRUGS (13)
  1. PLAVIX [Suspect]
     Active Substance: CLOPIDOGREL BISULFATE
     Dosage: 75 MG, QD
     Route: 048
     Dates: start: 20210407, end: 20210917
  2. ARIXTRA [Suspect]
     Active Substance: FONDAPARINUX SODIUM
     Route: 058
     Dates: start: 20210904, end: 20210917
  3. IMOVANE [Concomitant]
     Active Substance: ZOPICLONE
     Dosage: UNK
  4. XALATAN [Concomitant]
     Active Substance: LATANOPROST
  5. REPAGLINIDE ACCORD [Concomitant]
  6. ATORVASTATIN [Concomitant]
     Active Substance: ATORVASTATIN
  7. ACETAMINOPHEN [Concomitant]
     Active Substance: ACETAMINOPHEN
  8. PANTOPRAZOLE [Concomitant]
     Active Substance: PANTOPRAZOLE
  9. VALSARTAN [Concomitant]
     Active Substance: VALSARTAN
  10. KARDEGIC [Concomitant]
     Active Substance: ASPIRIN DL-LYSINE
  11. ESCITALOPRAM [Concomitant]
     Active Substance: ESCITALOPRAM OXALATE
  12. POLYETHYLENE GLYCOLS [Concomitant]
     Active Substance: POLYETHYLENE GLYCOLS
  13. COLCHICINE [Concomitant]
     Active Substance: COLCHICINE

REACTIONS (2)
  - Haemorrhage [Fatal]
  - Haematoma [Fatal]

NARRATIVE: CASE EVENT DATE: 20210912
